FAERS Safety Report 10854158 (Version 1)
Quarter: 2015Q1

REPORT INFORMATION
  Report Type: Spontaneous
  Country: US (occurrence: None)
  Receive Date: 20150218
  Receipt Date: 20150218
  Transmission Date: 20150721
  Serious: No
  Sender: FDA-Public Use
  Company Number: None

PATIENT
  Age: 20 Year
  Sex: Female
  Weight: 52.16 kg

DRUGS (2)
  1. DEPO-PROVERA [Suspect]
     Active Substance: MEDROXYPROGESTERONE ACETATE
     Indication: CONTRACEPTION
     Dosage: ONE SHOT ONE EVERY 3 MONTHS
     Route: 030
  2. DEPO-PROVERA [Suspect]
     Active Substance: MEDROXYPROGESTERONE ACETATE
     Dosage: ONE SHOT ONE EVERY 3 MONTHS
     Route: 030

REACTIONS (5)
  - Emotional disorder [None]
  - Inappropriate affect [None]
  - Menorrhagia [None]
  - Anger [None]
  - Rhinitis [None]

NARRATIVE: CASE EVENT DATE: 20150213
